FAERS Safety Report 25891153 (Version 1)
Quarter: 2025Q4

REPORT INFORMATION
  Report Type: Spontaneous
  Country: US (occurrence: US)
  Receive Date: 20251007
  Receipt Date: 20251007
  Transmission Date: 20260117
  Serious: No
  Sender: VERONA PHARMA
  Company Number: US-VERONA PHARMA-VER-007732

PATIENT

DRUGS (1)
  1. OHTUVAYRE [Suspect]
     Active Substance: ENSIFENTRINE
     Indication: Product used for unknown indication

REACTIONS (5)
  - Sputum discoloured [Recovered/Resolved]
  - Chest pain [Recovered/Resolved]
  - Chills [Recovered/Resolved]
  - Asthenia [Unknown]
  - Malaise [Recovered/Resolved]
